FAERS Safety Report 6965242-X (Version None)
Quarter: 2010Q3

REPORT INFORMATION
  Report Type: 
  Country: None (occurrence: None)
  Receive Date: 20100903
  Receipt Date: 20100824
  Transmission Date: 20110219
  Serious: Yes (Hospitalization)
  Sender: FDA-Public Use
  Company Number: PHHY2010US55674

PATIENT
  Sex: Female

DRUGS (7)
  1. EXJADE [Suspect]
     Indication: SICKLE CELL ANAEMIA
     Dosage: 1500 MG, DAILY
     Route: 048
  2. EXJADE [Suspect]
     Indication: IRON OVERLOAD
  3. PENICILLIN [Concomitant]
     Dosage: 250 MG, BID
     Route: 048
  4. FOLIC ACID [Concomitant]
     Dosage: 1 MG, DAILY
  5. TOPAMAX [Concomitant]
     Dosage: 150 MG, PRN
  6. ACETAMINOPHEN [Concomitant]
  7. BENADRYL [Concomitant]

REACTIONS (4)
  - CHILLS [None]
  - DIZZINESS [None]
  - HYPOTENSION [None]
  - TRANSFUSION REACTION [None]
